FAERS Safety Report 6208341-2 (Version None)
Quarter: 2009Q2

REPORT INFORMATION
  Report Type: 
  Country: None (occurrence: None)
  Receive Date: 20090529
  Receipt Date: 20090520
  Transmission Date: 20091009
  Serious: Yes (Death, Other)
  Sender: FDA-Public Use
  Company Number: CA-AVENTIS-200915262GDDC

PATIENT
  Age: 78 Year
  Sex: Female

DRUGS (4)
  1. FLAGYL [Suspect]
     Dosage: DOSE: UNK
  2. DIFLUCAN [Concomitant]
     Route: 048
  3. CLORAZEPATE DIPOTASSIUM [Concomitant]
     Dosage: DOSE: UNK
  4. UNKNOWN DRUG [Concomitant]

REACTIONS (3)
  - CONFUSIONAL STATE [None]
  - DEATH [None]
  - DELIRIUM [None]
